FAERS Safety Report 22356269 (Version 1)
Quarter: 2023Q2

REPORT INFORMATION
  Report Type: Spontaneous
  Country: GB (occurrence: GB)
  Receive Date: 20230523
  Receipt Date: 20230523
  Transmission Date: 20230722
  Serious: Yes (Other)
  Sender: FDA-Public Use
  Company Number: None

PATIENT
  Sex: Female
  Weight: 61 kg

DRUGS (3)
  1. UNSPECIFIED INGREDIENT [Suspect]
     Active Substance: UNSPECIFIED INGREDIENT
     Indication: Glaucoma surgery
     Dosage: DROP AFTER EACH OPERATION, THEN 2 HOURLY
     Dates: end: 202305
  2. THEICAL D3 [Concomitant]
     Indication: Osteoporosis
     Dosage: UNK, QD
  3. ALENDRONIC ACID [Concomitant]
     Active Substance: ALENDRONIC ACID
     Dosage: UNK, Q WEEK

REACTIONS (3)
  - Osteoporosis [Not Recovered/Not Resolved]
  - Nail ridging [Recovering/Resolving]
  - Onychoclasis [Recovering/Resolving]

NARRATIVE: CASE EVENT DATE: 20220501
